FAERS Safety Report 9254737 (Version 1)
Quarter: 2013Q2

REPORT INFORMATION
  Report Type: Spontaneous
  Country: AU (occurrence: AU)
  Receive Date: 20130425
  Receipt Date: 20130425
  Transmission Date: 20140414
  Serious: Yes (Death)
  Sender: FDA-Public Use
  Company Number: AU-SANOFI-AVENTIS-2013SA042322

PATIENT
  Age: 79 Year
  Sex: Female

DRUGS (8)
  1. ARAVA [Suspect]
     Indication: PRODUCT USED FOR UNKNOWN INDICATION
     Route: 048
  2. METHOTREXATE [Interacting]
     Indication: PRODUCT USED FOR UNKNOWN INDICATION
     Route: 065
  3. CALCITRIOL [Concomitant]
  4. CAPTOPRIL [Concomitant]
  5. CELECOXIB [Concomitant]
  6. ESTRADIOL [Concomitant]
  7. FOLIC ACID [Concomitant]
  8. FRUSEMIDE [Concomitant]

REACTIONS (6)
  - Pancytopenia [Fatal]
  - Drug interaction [Fatal]
  - Haemoglobin decreased [Fatal]
  - White blood cell count decreased [Fatal]
  - Neutropenia [Fatal]
  - Platelet count decreased [Fatal]
